FAERS Safety Report 11561968 (Version 1)
Quarter: 2015Q3

REPORT INFORMATION
  Report Type: Spontaneous
  Country: US (occurrence: US)
  Receive Date: 20150916
  Receipt Date: 20150916
  Transmission Date: 20151125
  Serious: No
  Sender: FDA-Public Use
  Company Number: US-ELI_LILLY_AND_COMPANY-US200811004250

PATIENT
  Age: 63 Year
  Sex: Female
  Weight: 66.67 kg

DRUGS (13)
  1. PROAIR HFA [Concomitant]
     Active Substance: ALBUTEROL SULFATE
  2. ASMANEX [Concomitant]
     Active Substance: MOMETASONE FUROATE
     Dosage: UNK, 2/D
  3. SLOW-MAG [Concomitant]
     Active Substance: MAGNESIUM CHLORIDE
     Dosage: 64 MG, 2/D
  4. POLARAMINE /00043702/ [Concomitant]
     Dosage: 6 MG, AS NEEDED
  5. VITAMIN B12 [Concomitant]
     Active Substance: CYANOCOBALAMIN
     Dosage: 1000 MG, DAILY (1/D)
  6. VITAMIN C [Concomitant]
     Active Substance: ASCORBIC ACID
  7. MOTRIN [Concomitant]
     Active Substance: IBUPROFEN
     Dosage: 800 MG, 3/D
  8. SCHIFF MOVE FREE [Concomitant]
     Active Substance: CHONDROITIN SULFATE A\GLUCOSAMINE
  9. SPIRIVA [Concomitant]
     Active Substance: TIOTROPIUM BROMIDE MONOHYDRATE
  10. FORTEO [Suspect]
     Active Substance: TERIPARATIDE
     Indication: OSTEOPOROSIS
     Dosage: 20 UG, DAILY (1/D)
     Dates: start: 20080411
  11. FLEXERIL [Concomitant]
     Active Substance: CYCLOBENZAPRINE HYDROCHLORIDE
     Dosage: 10 MG, 2/D
  12. VITAMIN E /001105/ [Concomitant]
  13. ZANAFLEX [Concomitant]
     Active Substance: TIZANIDINE HYDROCHLORIDE
     Dosage: 2 MG, EACH EVENING

REACTIONS (2)
  - Medication error [Recovered/Resolved]
  - Accidental overdose [Recovered/Resolved]

NARRATIVE: CASE EVENT DATE: 20081116
